FAERS Safety Report 7820763-2 (Version None)
Quarter: 2011Q4

REPORT INFORMATION
  Report Type: 
  Country: None (occurrence: None)
  Receive Date: 20111018
  Receipt Date: 20111004
  Transmission Date: 20120403
  Serious: Yes (Other)
  Sender: FDA-Public Use
  Company Number: US-BAYER-2011-027761

PATIENT
  Sex: Female
  Weight: 79.365 kg

DRUGS (5)
  1. LEXAPRO [Concomitant]
  2. SEQUELAN [Concomitant]
     Indication: ANXIETY
  3. LORTAB [Concomitant]
  4. DROSPIRENONE AND ETHINYL ESTRADIOL [Suspect]
     Dosage: UNK
     Dates: start: 20040101
  5. YAZ [Suspect]
     Dosage: UNK
     Dates: start: 20040101

REACTIONS (10)
  - GALLBLADDER DISORDER [None]
  - ANHEDONIA [None]
  - THROMBOSIS [None]
  - INJURY [None]
  - EMOTIONAL DISTRESS [None]
  - CEREBROVASCULAR ACCIDENT [None]
  - PULMONARY EMBOLISM [None]
  - PAIN [None]
  - GENERAL PHYSICAL HEALTH DETERIORATION [None]
  - ANXIETY [None]
